FAERS Safety Report 10213579 (Version 3)
Quarter: 2014Q2

REPORT INFORMATION
  Report Type: Spontaneous
  Country: LK (occurrence: LK)
  Receive Date: 20140603
  Receipt Date: 20140617
  Transmission Date: 20141212
  Serious: Yes (Other)
  Sender: FDA-Public Use
  Company Number: LK-RANBAXY-2014RR-81407

PATIENT
  Age: 75 Year
  Sex: Female

DRUGS (5)
  1. RISPERIDONE [Suspect]
     Indication: BIPOLAR DISORDER
     Dosage: 4 MG, BID
     Route: 048
  2. RISPERIDONE [Suspect]
     Indication: BIPOLAR DISORDER
     Dosage: 4 MG AT NIGHT
     Route: 048
  3. LORAZEPAM [Suspect]
     Indication: AGITATION
     Dosage: 1 MG, OCCASIONALLY
     Route: 048
  4. LORAZEPAM [Suspect]
     Indication: POOR QUALITY SLEEP
  5. VALPROIC ACID [Suspect]
     Indication: BIPOLAR DISORDER
     Dosage: 400 MG, BID
     Route: 048

REACTIONS (4)
  - Hypothermia [Recovered/Resolved]
  - Extrapyramidal disorder [Recovered/Resolved]
  - Somnolence [Recovered/Resolved]
  - Treatment noncompliance [Recovered/Resolved]
